FAERS Safety Report 6724885-9 (Version None)
Quarter: 2010Q2

REPORT INFORMATION
  Report Type: 
  Country: None (occurrence: None)
  Receive Date: 20100513
  Receipt Date: 20100513
  Transmission Date: 20101027
  Serious: Yes (Other)
  Sender: FDA-Public Use
  Company Number: None

PATIENT
  Sex: Male
  Weight: 79.8331 kg

DRUGS (1)
  1. CRESTOR [Suspect]
     Indication: BLOOD CHOLESTEROL
     Dosage: 10MG. 1XDAILY ORAL
     Route: 048
     Dates: start: 20100223, end: 20100501

REACTIONS (2)
  - DYSPHONIA [None]
  - OEDEMA MOUTH [None]
